FAERS Safety Report 6317498-4 (Version None)
Quarter: 2009Q3

REPORT INFORMATION
  Report Type: 
  Country: None (occurrence: None)
  Receive Date: 20090821
  Receipt Date: 20090626
  Transmission Date: 20100115
  Serious: Yes (Other)
  Sender: FDA-Public Use
  Company Number: GB-BAXTER-2009BH009013

PATIENT

DRUGS (1)
  1. TISSEEL VH/SD KIT LYOPHILIZED [Suspect]
     Indication: HAEMOSTASIS
     Route: 065

REACTIONS (1)
  - HEART RATE DECREASED [None]
